FAERS Safety Report 8101492-7 (Version None)
Quarter: 2012Q1

REPORT INFORMATION
  Report Type: 
  Country: None (occurrence: None)
  Receive Date: 20120129
  Receipt Date: 20111010
  Transmission Date: 20120608
  Serious: No
  Sender: FDA-Public Use
  Company Number: US-ABBOTT-11P-163-0863126-00

PATIENT
  Age: 62 Year
  Sex: Female

DRUGS (12)
  1. HYDROXYZINE HCL [Concomitant]
     Indication: HYPERSENSITIVITY
  2. BENICAR [Concomitant]
     Indication: BLOOD PRESSURE INCREASED
  3. HYDROXYZINE HCL [Concomitant]
     Indication: ASTHMA
  4. HUMIRA [Suspect]
     Indication: RHEUMATOID ARTHRITIS
     Dates: start: 20110818
  5. SYNTHROID [Concomitant]
     Indication: PRODUCT USED FOR UNKNOWN INDICATION
  6. AMBIEN [Concomitant]
     Indication: PRODUCT USED FOR UNKNOWN INDICATION
     Dosage: DAILY
  7. PLAQUENIL [Concomitant]
  8. SINGULAIR [Concomitant]
     Indication: PRODUCT USED FOR UNKNOWN INDICATION
  9. FENOFIBRATE [Concomitant]
     Indication: BLOOD CHOLESTEROL
  10. PLAQUENIL [Concomitant]
     Indication: PRODUCT USED FOR UNKNOWN INDICATION
  11. DOXYCYCLINE [Suspect]
     Indication: SINUSITIS
     Dosage: FOR 10 DAYS
  12. OMEPRAZOLE [Concomitant]
     Indication: PRODUCT USED FOR UNKNOWN INDICATION

REACTIONS (4)
  - INFLAMMATION [None]
  - SINUSITIS [None]
  - RASH [None]
  - PRURITUS [None]
